FAERS Safety Report 18741301 (Version 3)
Quarter: 2021Q1

REPORT INFORMATION
  Report Type: Spontaneous
  Country: US (occurrence: US)
  Receive Date: 20210114
  Receipt Date: 20210209
  Transmission Date: 20210419
  Serious: No
  Sender: FDA-Public Use
  Company Number: US-PFIZER INC-2021020987

PATIENT
  Age: 65 Year

DRUGS (1)
  1. PREMARIN [Suspect]
     Active Substance: ESTROGENS, CONJUGATED
     Dosage: UNK

REACTIONS (7)
  - Dyspnoea [Unknown]
  - Hyperhidrosis [Unknown]
  - Poor quality sleep [Unknown]
  - Illness [Unknown]
  - Asthma [Unknown]
  - Feeling abnormal [Unknown]
  - Insomnia [Unknown]

NARRATIVE: CASE EVENT DATE: 2020
